FAERS Safety Report 10730142 (Version 3)
Quarter: 2015Q3

REPORT INFORMATION
  Report Type: Report from Study
  Country: US (occurrence: US)
  Receive Date: 20150122
  Receipt Date: 20150901
  Transmission Date: 20151125
  Serious: Yes (Other)
  Sender: FDA-Public Use
  Company Number: US-GILEAD-2015-0133265

PATIENT
  Age: 78 Year
  Sex: Female

DRUGS (1)
  1. AMBRISENTAN [Suspect]
     Active Substance: AMBRISENTAN
     Indication: PRODUCT USED FOR UNKNOWN INDICATION
     Dosage: 10 MG, QD
     Route: 065
     Dates: start: 20081230

REACTIONS (6)
  - Systemic lupus erythematosus [Unknown]
  - Fatigue [Unknown]
  - Fluid retention [Unknown]
  - Dizziness [Unknown]
  - Bronchitis [Unknown]
  - Rotator cuff syndrome [Unknown]
